FAERS Safety Report 4550283-2 (Version None)
Quarter: 2004Q4

REPORT INFORMATION
  Report Type: 
  Country: None (occurrence: None)
  Receive Date: 20041227
  Receipt Date: 20041110
  Transmission Date: 20050328
  Serious: No
  Sender: FDA-Public Use
  Company Number: 04P-163-0280398-00

PATIENT
  Age: 62 Year
  Sex: Female

DRUGS (6)
  1. HUMIRA [Suspect]
     Indication: RHEUMATOID ARTHRITIS
     Dosage: 40 MG, 1 IN 2 WK, SUBCUTANEOUS
     Route: 058
     Dates: start: 20041029
  2. CARBAMAZEPINE [Concomitant]
  3. VALSARTAN [Concomitant]
  4. NAPROXEN SODIUM [Concomitant]
  5. CRESTOR [Concomitant]
  6. MULTI-VITAMINS [Concomitant]

REACTIONS (1)
  - INJECTION SITE HAEMORRHAGE [None]
